FAERS Safety Report 25888632 (Version 2)
Quarter: 2025Q4

REPORT INFORMATION
  Report Type: Spontaneous
  Country: US (occurrence: US)
  Receive Date: 20251007
  Receipt Date: 20251013
  Transmission Date: 20260119
  Serious: No
  Sender: AVERITAS
  Company Number: US-GRUNENTHAL-2025-122896

PATIENT
  Age: 73 Year
  Sex: Male

DRUGS (6)
  1. QUTENZA [Suspect]
     Active Substance: CAPSAICIN
     Indication: Neuralgia
     Dosage: UNK, ONCE
     Route: 061
     Dates: start: 20250922, end: 20250922
  2. QUTENZA [Suspect]
     Active Substance: CAPSAICIN
     Indication: Burning sensation
     Dosage: UNK
     Route: 061
     Dates: start: 2025, end: 2025
  3. QUTENZA [Suspect]
     Active Substance: CAPSAICIN
     Indication: Hypoaesthesia
  4. LYRICA [Concomitant]
     Active Substance: PREGABALIN
     Indication: Product used for unknown indication
     Dosage: UNK
     Route: 065
  5. TADALAFIL [Concomitant]
     Active Substance: TADALAFIL
     Indication: Product used for unknown indication
     Dosage: UNK
     Route: 065
  6. ZETIA [Concomitant]
     Active Substance: EZETIMIBE
     Indication: Product used for unknown indication
     Dosage: UNK
     Route: 065

REACTIONS (7)
  - Application site pain [Recovered/Resolved]
  - Application site pain [Recovered/Resolved]
  - Application site erythema [Recovering/Resolving]
  - Impaired driving ability [Recovered/Resolved]
  - Dyskinesia [Recovering/Resolving]
  - Tremor [Recovering/Resolving]
  - Application site pain [Recovered/Resolved]

NARRATIVE: CASE EVENT DATE: 20250101
